FAERS Safety Report 7449495-X (Version None)
Quarter: 2011Q2

REPORT INFORMATION
  Report Type: 
  Country: None (occurrence: None)
  Receive Date: 20110502
  Receipt Date: 20110421
  Transmission Date: 20111010
  Serious: Yes (Hospitalization)
  Sender: FDA-Public Use
  Company Number: IT-BAYER-2011-035455

PATIENT
  Age: 76 Year
  Sex: Male

DRUGS (2)
  1. ACETYLSALICYLIC ACID SRT [Suspect]
     Indication: MYOCARDIAL ISCHAEMIA
     Dosage: DAILY DOSE 100 MG
     Route: 048
     Dates: start: 20080101, end: 20110208
  2. ZESTORETIC [Concomitant]
     Indication: HYPERTENSION
     Route: 048

REACTIONS (2)
  - EPILEPSY [None]
  - CEREBRAL HAEMATOMA [None]
